FAERS Safety Report 5710628-4 (Version None)
Quarter: 2008Q2

REPORT INFORMATION
  Report Type: 
  Country: None (occurrence: None)
  Receive Date: 20080415
  Receipt Date: 20080408
  Transmission Date: 20081010
  Serious: Yes (Death, Other)
  Sender: FDA-Public Use
  Company Number: 009-21880-08040626

PATIENT
  Sex: Male

DRUGS (1)
  1. REVLIMID [Suspect]
     Indication: NON-HODGKIN'S LYMPHOMA REFRACTORY
     Dosage: 5 MG, QD, ORAL
     Route: 048
     Dates: start: 20080315, end: 20080318

REACTIONS (2)
  - CLOSTRIDIUM COLITIS [None]
  - SEPSIS [None]
